FAERS Safety Report 24667185 (Version 1)
Quarter: 2024Q4

REPORT INFORMATION
  Report Type: Spontaneous
  Country: CA (occurrence: CA)
  Receive Date: 20241126
  Receipt Date: 20241126
  Transmission Date: 20250115
  Serious: Yes (Life-Threatening, Hospitalization, Other)
  Sender: TEVA
  Company Number: CA-TEVA-VS-3266715

PATIENT
  Sex: Female

DRUGS (3)
  1. ETOPOSIDE [Suspect]
     Active Substance: ETOPOSIDE
     Indication: Acute myeloid leukaemia
     Dosage: DOSE FORM: LIQUID INTRAVENOUS
     Route: 042
  2. CYTARABINE [Suspect]
     Active Substance: CYTARABINE
     Indication: Product used for unknown indication
     Dosage: DOSE FORM: SOLUTION INTRATHECAL
     Route: 042
  3. CERUBIDINE [Suspect]
     Active Substance: DAUNORUBICIN HYDROCHLORIDE
     Indication: Acute myeloid leukaemia
     Dosage: DOSE FORM: POWDER FOR SOLUTION INTRAVENOUS
     Route: 042

REACTIONS (3)
  - Pyrexia [Recovered/Resolved]
  - Enterovirus test positive [Recovered/Resolved]
  - Human rhinovirus test positive [Recovered/Resolved]
